FAERS Safety Report 6845811-8 (Version None)
Quarter: 2010Q3

REPORT INFORMATION
  Report Type: 
  Country: None (occurrence: None)
  Receive Date: 20100715
  Receipt Date: 20071024
  Transmission Date: 20110219
  Serious: No
  Sender: FDA-Public Use
  Company Number: US-PFIZER INC-2007071988

PATIENT
  Sex: Male
  Weight: 118.8 kg

DRUGS (8)
  1. CHANTIX [Suspect]
     Indication: SMOKING CESSATION THERAPY
     Dates: start: 20070826
  2. VICODIN [Suspect]
     Indication: PAIN
  3. AVANDIA [Concomitant]
     Indication: DIABETES MELLITUS
  4. KLONOPIN [Concomitant]
  5. PREVACID [Concomitant]
  6. ALL OTHER THERAPEUTIC PRODUCTS [Concomitant]
  7. LISINOPRIL [Concomitant]
  8. COREG [Concomitant]

REACTIONS (1)
  - FEELING ABNORMAL [None]
